FAERS Safety Report 6648479-9 (Version None)
Quarter: 2010Q1

REPORT INFORMATION
  Report Type: 
  Country: None (occurrence: None)
  Receive Date: 20100324
  Receipt Date: 20100322
  Transmission Date: 20100710
  Serious: Yes (Other)
  Sender: FDA-Public Use
  Company Number: US-JNJCH-2010005451

PATIENT
  Age: 45 Year
  Sex: Male
  Weight: 102.1 kg

DRUGS (1)
  1. ROGAINE [Suspect]
     Indication: ALOPECIA
     Dosage: TEXT:1ML 1-2XS A DAY
     Route: 061
     Dates: start: 20090301, end: 20100302

REACTIONS (3)
  - APPLICATION SITE IRRITATION [None]
  - BURNS FIRST DEGREE [None]
  - SKIN EXFOLIATION [None]
